FAERS Safety Report 5288658-9 (Version None)
Quarter: 2007Q2

REPORT INFORMATION
  Report Type: 
  Country: None (occurrence: None)
  Receive Date: 20070405
  Receipt Date: 20070321
  Transmission Date: 20071010
  Serious: Yes (Other)
  Sender: FDA-Public Use
  Company Number: DE-SHR-DE-2007-004223

PATIENT
  Age: 76 Year
  Sex: Female

DRUGS (12)
  1. REFLUDAN [Suspect]
     Dosage: 2 MG FOR 4 HOURS, 3X/WEEK
     Route: 042
  2. ACETYLSALICYLIC ACID SRT [Concomitant]
  3. MOLSIDOMINE [Concomitant]
  4. ISOSORBIDE MONONITRATE [Concomitant]
     Dosage: UNK, 1X/DAY
     Route: 048
  5. ENALAPRIL MALEATE [Concomitant]
     Indication: HYPERTENSION
     Dosage: 10 MG, UNK
  6. EPOGEN [Concomitant]
     Dosage: UNK, 3X/WEEK
  7. SODIUM FERRIGLUCONATE [Concomitant]
     Indication: ANAEMIA
     Dosage: 62.5 MG, 1X/6 WEEKS
  8. PANCREATIN TRIPLE STRENGTH CAP [Concomitant]
     Indication: PANCREATIC INSUFFICIENCY
  9. OESTRIOL + OESTRADIOL [Concomitant]
     Indication: MENOPAUSE
     Dosage: UNK, 1X/DAY
  10. PANTOPRAZOLE [Concomitant]
     Indication: GASTRITIS
  11. CALCIUM CITRATE [Concomitant]
     Indication: HYPERPARATHYROIDISM
     Dosage: 2 APPLIC, 3X/DAY
     Route: 048
  12. ALFACALCIDOL [Concomitant]
     Indication: HYPERPARATHYROIDISM
     Dosage: UNK, 1X/DAY
     Route: 048

REACTIONS (2)
  - MUSCLE SPASMS [None]
  - TETANY [None]
